FAERS Safety Report 8400213-8 (Version None)
Quarter: 2012Q2

REPORT INFORMATION
  Report Type: 
  Country: None (occurrence: None)
  Receive Date: 20120531
  Receipt Date: 20120525
  Transmission Date: 20120825
  Serious: Yes (Hospitalization, Congenital Anomaly, Other)
  Sender: FDA-Public Use
  Company Number: US-PFIZER INC-2012128681

PATIENT
  Sex: Female
  Weight: 4 kg

DRUGS (14)
  1. VENLAFAXINE [Concomitant]
     Indication: DEPRESSION
     Dosage: 37.5 MG, 1X/DAY
     Route: 064
     Dates: start: 20100419
  2. ZOLPIDEM [Concomitant]
     Indication: SLEEP DISORDER
     Dosage: 5 MG, 1X/DAY
     Route: 064
     Dates: start: 20101209, end: 20101229
  3. VENLAFAXINE [Concomitant]
     Dosage: 37.5 MG, 2X/DAY
     Dates: start: 20100419
  4. INSULIN INJECTION [Concomitant]
     Indication: DIABETES MELLITUS
     Dosage: 01 ML, UNK
     Route: 064
     Dates: start: 20101130, end: 20101231
  5. SERTRALINE [Concomitant]
     Indication: DEPRESSION
     Dosage: 50 MG, 1X/DAY
     Route: 064
     Dates: start: 20091217
  6. BUPROPION [Concomitant]
     Dosage: 150 MG, 2X/DAY
     Dates: start: 20100423
  7. GLYBURIDE [Concomitant]
     Indication: BLOOD GLUCOSE INCREASED
     Dosage: 05 MG, 2X/DAY, WITH BREAKFAST AND WITH EVENING MEAL
     Route: 064
     Dates: start: 20101108, end: 20110101
  8. NOVOLIN N [Concomitant]
     Indication: DIABETES MELLITUS
     Dosage: 100 UNITS/ML
     Route: 064
     Dates: start: 20101130, end: 20101231
  9. BUPROPION [Concomitant]
     Indication: DEPRESSION
     Dosage: 75 MG, 2X/DAY
     Route: 064
     Dates: start: 20100423
  10. ZOLOFT [Suspect]
     Indication: DEPRESSION
     Dosage: 50 MG, 1X/DAY
     Route: 064
     Dates: start: 20100115
  11. TRAZODONE [Concomitant]
     Indication: SLEEP DISORDER
     Dosage: 50 MG, ONE-HALF TO TWO TABLETS, EVERY NIGHT AT BED TIME
     Route: 064
     Dates: start: 20100419
  12. PROPRANOLOL [Concomitant]
     Indication: MIGRAINE PROPHYLAXIS
     Dosage: 20 MG, 2X/DAY
     Route: 064
     Dates: start: 20101217
  13. AMOXICILLIN [Concomitant]
     Indication: INFECTION
     Dosage: 500 MG, 2X/DAY
     Route: 064
     Dates: start: 20100618, end: 20100629
  14. NOVOLIN R [Concomitant]
     Indication: DIABETES MELLITUS
     Dosage: 100 UNITS/ML
     Route: 064
     Dates: start: 20101130, end: 20101231

REACTIONS (7)
  - MATERNAL EXPOSURE TIMING UNSPECIFIED [None]
  - LEFT VENTRICULAR HYPERTROPHY [None]
  - ISOIMMUNE HAEMOLYTIC DISEASE [None]
  - ATRIAL SEPTAL DEFECT [None]
  - PATENT DUCTUS ARTERIOSUS [None]
  - RIGHT VENTRICULAR HYPERTROPHY [None]
  - CARDIOMEGALY [None]
